FAERS Safety Report 25059864 (Version 1)
Quarter: 2025Q1

REPORT INFORMATION
  Report Type: Spontaneous
  Country: US (occurrence: US)
  Receive Date: 20250310
  Receipt Date: 20250310
  Transmission Date: 20250408
  Serious: No
  Sender: GALPHARM INTERNATIONAL
  Company Number: US-PERRIGO-25US000769

PATIENT

DRUGS (1)
  1. ACETAMINOPHEN AND IBUPROFEN [Suspect]
     Active Substance: ACETAMINOPHEN\IBUPROFEN
     Indication: Migraine
     Route: 048

REACTIONS (1)
  - Drug effective for unapproved indication [Unknown]
